FAERS Safety Report 8278734-0 (Version None)
Quarter: 2012Q2

REPORT INFORMATION
  Report Type: 
  Country: None (occurrence: None)
  Receive Date: 20120412
  Receipt Date: 20111101
  Transmission Date: 20120825
  Serious: No
  Sender: FDA-Public Use
  Company Number: US-ASTRAZENECA-2011SE61330

PATIENT
  Age: 50 Year
  Sex: Female
  Weight: 61.2 kg

DRUGS (12)
  1. NEXIUM [Suspect]
     Indication: GASTRIC ULCER
     Route: 048
  2. NEUPRROPAMINE [Concomitant]
  3. BENZOPAMINE [Concomitant]
  4. ZOPOMAX [Concomitant]
  5. SEROQUEL [Suspect]
     Indication: DEPRESSION
     Route: 048
  6. CYMBALTA [Concomitant]
  7. DESICRE [Concomitant]
  8. SEROQUEL [Suspect]
     Indication: SLEEP DISORDER
     Route: 048
  9. LAMICTAL [Concomitant]
  10. PRIZODONE [Concomitant]
  11. ABILOFIDE [Concomitant]
  12. LEVOFLOROCINE [Concomitant]

REACTIONS (5)
  - COGNITIVE DISORDER [None]
  - BIPOLAR DISORDER [None]
  - INSOMNIA [None]
  - OFF LABEL USE [None]
  - DRUG DOSE OMISSION [None]
